FAERS Safety Report 7250369-8 (Version None)
Quarter: 2011Q1

REPORT INFORMATION
  Report Type: 
  Country: None (occurrence: None)
  Receive Date: 20110118
  Receipt Date: 20110107
  Transmission Date: 20110831
  Serious: Yes (Hospitalization)
  Sender: FDA-Public Use
  Company Number: 799447

PATIENT
  Sex: 0

DRUGS (2)
  1. (CAR0OPLATIN) [Suspect]
     Indication: ENDOMETRIAL CANCER
     Dosage: 3-WEEK INTERVALS AUC 5   INTRAVENOUS DRIP
     Route: 041
  2. PACLITAXEL [Suspect]
     Indication: ENDOMETRIAL CANCER
     Dosage: 175 MG/M 2 MILLIGRAM(S)/SQ. METER , INTRAVENOUS DRIP
     Route: 041

REACTIONS (2)
  - TOOTH INFECTION [None]
  - FEBRILE NEUTROPENIA [None]
